FAERS Safety Report 20074286 (Version 2)
Quarter: 2021Q4

REPORT INFORMATION
  Report Type: Spontaneous
  Country: US (occurrence: US)
  Receive Date: 20211116
  Receipt Date: 20211124
  Transmission Date: 20220303
  Serious: Yes (Other)
  Sender: FDA-Public Use
  Company Number: US-PFIZER INC-202101506848

PATIENT
  Age: 76 Year
  Sex: Male

DRUGS (2)
  1. METHYLPREDNISOLONE SODIUM SUCCINATE [Suspect]
     Active Substance: METHYLPREDNISOLONE SODIUM SUCCINATE
     Indication: Lung disorder
     Dosage: PULSE DOSE,46 MG/DL AND STEROID DOSE INCREASED TO 1000 MG/D FOR 3 DAYS;
  2. METHYLPREDNISOLONE SODIUM SUCCINATE [Suspect]
     Active Substance: METHYLPREDNISOLONE SODIUM SUCCINATE
     Indication: Pulmonary sarcoidosis
     Dosage: STEROIDS WERE TAPERED AND EVENTUALLY DISCONTINUED

REACTIONS (3)
  - Drug ineffective [Unknown]
  - Systemic candida [Unknown]
  - Meningoencephalitis herpetic [Unknown]
